FAERS Safety Report 6580422-3 (Version None)
Quarter: 2010Q1

REPORT INFORMATION
  Report Type: 
  Country: None (occurrence: None)
  Receive Date: 20100212
  Receipt Date: 20100204
  Transmission Date: 20100710
  Serious: Yes (Other)
  Sender: FDA-Public Use
  Company Number: PHHY2010DE06836

PATIENT
  Age: 69 Year
  Sex: Female

DRUGS (1)
  1. FEMARA [Suspect]
     Indication: BREAST CANCER
     Dosage: 2.5 MG, QD
     Route: 048
     Dates: start: 20080301

REACTIONS (8)
  - ALOPECIA [None]
  - CONDITION AGGRAVATED [None]
  - CYSTITIS [None]
  - DYSGEUSIA [None]
  - FALL [None]
  - HYPOAESTHESIA [None]
  - NAUSEA [None]
  - POLYNEUROPATHY [None]
